FAERS Safety Report 9094391 (Version 2)
Quarter: 2013Q2

REPORT INFORMATION
  Report Type: Report from Study
  Country: CH (occurrence: CH)
  Receive Date: 20130218
  Receipt Date: 20130610
  Transmission Date: 20140414
  Serious: Yes (Other)
  Sender: FDA-Public Use
  Company Number: CH-ROCHE-1191869

PATIENT
  Age: 74 Year
  Sex: Male
  Weight: 64 kg

DRUGS (1)
  1. MIRCERA [Suspect]
     Indication: NEPHROGENIC ANAEMIA
     Route: 065

REACTIONS (3)
  - Haemorrhage [Unknown]
  - Haemoglobin decreased [Unknown]
  - Respiratory tract infection [Unknown]
